FAERS Safety Report 25935069 (Version 2)
Quarter: 2025Q4

REPORT INFORMATION
  Report Type: Spontaneous
  Country: US (occurrence: US)
  Receive Date: 20251017
  Receipt Date: 20251031
  Transmission Date: 20260118
  Serious: Yes (Other)
  Sender: TEVA
  Company Number: US-TEVA-VS-3381916

PATIENT
  Age: 66 Year
  Sex: Female

DRUGS (4)
  1. DOXORUBICIN [Suspect]
     Active Substance: DOXORUBICIN
     Indication: Cutaneous T-cell lymphoma stage IV
     Route: 065
     Dates: start: 202210, end: 2022
  2. GEMCITABINE [Suspect]
     Active Substance: GEMCITABINE
     Indication: Cutaneous T-cell lymphoma stage IV
     Route: 065
     Dates: start: 2023, end: 2023
  3. GEMCITABINE [Suspect]
     Active Substance: GEMCITABINE
     Indication: Cutaneous T-cell lymphoma stage IV
     Dosage: OVER THE COURSE OF 7 CYCLES
     Route: 065
     Dates: start: 202210, end: 202301
  4. PRALATREXATE [Suspect]
     Active Substance: PRALATREXATE
     Indication: Cutaneous T-cell lymphoma stage IV
     Route: 065
     Dates: start: 202304, end: 2023

REACTIONS (8)
  - Infusion related reaction [Unknown]
  - Pyrexia [Unknown]
  - Drug ineffective [Unknown]
  - Diarrhoea [Unknown]
  - Dehydration [Unknown]
  - Drug intolerance [Unknown]
  - Weight decreased [Unknown]
  - Fatigue [Unknown]

NARRATIVE: CASE EVENT DATE: 20221001
